FAERS Safety Report 24059370 (Version 1)
Quarter: 2024Q3

REPORT INFORMATION
  Report Type: Spontaneous
  Country: IL (occurrence: IL)
  Receive Date: 20240708
  Receipt Date: 20240708
  Transmission Date: 20241016
  Serious: Yes (Other)
  Sender: ROCHE
  Company Number: IL-002147023-NVSC2024IL134336

PATIENT
  Age: 36 Year
  Sex: Male

DRUGS (1)
  1. XOLAIR [Suspect]
     Active Substance: OMALIZUMAB
     Indication: Urticaria
     Dosage: 300 MG, Q4W
     Route: 065

REACTIONS (5)
  - Anaphylactic reaction [Unknown]
  - Angioedema [Unknown]
  - Adverse drug reaction [Unknown]
  - Blood immunoglobulin E increased [Unknown]
  - Asthma [Unknown]
